FAERS Safety Report 6697767-9 (Version None)
Quarter: 2010Q2

REPORT INFORMATION
  Report Type: 
  Country: None (occurrence: None)
  Receive Date: 20100423
  Receipt Date: 20100415
  Transmission Date: 20101027
  Serious: Yes (Disabling)
  Sender: FDA-Public Use
  Company Number: SPV1-2010-00740

PATIENT
  Sex: Male

DRUGS (10)
  1. FOSRENOL [Suspect]
     Indication: HYPERPHOSPHATAEMIA
     Dosage: 1500MG; 750 MG
     Dates: start: 20090729, end: 20091222
  2. FOSRENOL [Suspect]
     Indication: HYPERPHOSPHATAEMIA
     Dosage: 1500MG; 750 MG
     Dates: start: 20091223
  3. DIOVAN [Concomitant]
  4. NORVASC [Concomitant]
  5. CARVEDILOL [Concomitant]
  6. ISOSORBIDE MONONITRATE [Concomitant]
  7. FAMOTIDINE [Concomitant]
  8. NESP (DARBEPOETIN ALFA) [Concomitant]
  9. PHOSBLOCK (SEVELAMER HYDROCHLORIDE) [Concomitant]
  10. CALCIUM CARBONATE [Concomitant]

REACTIONS (3)
  - CERVICAL MYELOPATHY [None]
  - HYPERPARATHYROIDISM SECONDARY [None]
  - SPINAL COLUMN STENOSIS [None]
